FAERS Safety Report 14366528 (Version 1)
Quarter: 2018Q1

REPORT INFORMATION
  Report Type: Spontaneous
  Country: US (occurrence: US)
  Receive Date: 20180108
  Receipt Date: 20180108
  Transmission Date: 20180509
  Serious: No
  Sender: FDA-Public Use
  Company Number: None

PATIENT
  Age: 28 Year
  Sex: Male
  Weight: 65.8 kg

DRUGS (1)
  1. DAPTOMYCIN 500 MG POWDER VIAL HOSPIRA [Suspect]
     Active Substance: DAPTOMYCIN
     Indication: OSTEOMYELITIS
     Dosage: 500 MG/10 MLS NS Q24 HOURS IV PUSH
     Route: 042
     Dates: start: 20171229, end: 20171229

REACTIONS (2)
  - Therapy cessation [None]
  - Tremor [None]

NARRATIVE: CASE EVENT DATE: 20171229
